FAERS Safety Report 9654444 (Version 1)
Quarter: 2013Q4

REPORT INFORMATION
  Report Type: Spontaneous
  Country: US (occurrence: None)
  Receive Date: 20131022
  Receipt Date: 20131022
  Transmission Date: 20140711
  Serious: Yes (Other)
  Sender: FDA-Public Use
  Company Number: A13-091

PATIENT
  Age: 6 Year
  Sex: Female

DRUGS (1)
  1. FIRE ANT [Suspect]
     Dosage: 1:100W/V, UNKNOWN

REACTIONS (2)
  - Middle insomnia [None]
  - Hallucination, visual [None]
